FAERS Safety Report 9501494 (Version 1)
Quarter: 2013Q3

REPORT INFORMATION
  Report Type: Report from Study
  Country: US (occurrence: US)
  Receive Date: 20130905
  Receipt Date: 20130905
  Transmission Date: 20140515
  Serious: Yes (Hospitalization, Other)
  Sender: FDA-Public Use
  Company Number: US-ABBOTT-13P-163-1139311-00

PATIENT
  Sex: Female

DRUGS (7)
  1. HUMIRA [Suspect]
     Indication: RHEUMATOID ARTHRITIS
  2. OXYCODONE [Concomitant]
     Indication: PAIN
     Dosage: 10/325 MG, UP TO 4 TIMES DAILY AS NEEDED
  3. OXYCODONE [Concomitant]
     Dosage: 10/325 MG, UP TO 4 TIMES DAILY AS NEEDED
  4. LAMOTRIGINE [Concomitant]
     Indication: PRODUCT USED FOR UNKNOWN INDICATION
  5. SULFASALAZINE [Concomitant]
     Indication: RHEUMATOID ARTHRITIS
     Dosage: 1 IN AM AND 1 IN PM
  6. TEMAZEPAM [Concomitant]
     Indication: INSOMNIA
     Dosage: AT BEDTIME
  7. UNKNOWN ANTI-DEPRESSANT [Concomitant]
     Indication: DEPRESSION

REACTIONS (12)
  - Arthropathy [Recovering/Resolving]
  - Hysterectomy [Unknown]
  - Bladder disorder [Not Recovered/Not Resolved]
  - Pain [Not Recovered/Not Resolved]
  - Bone density decreased [Unknown]
  - Attention deficit/hyperactivity disorder [Unknown]
  - Anxiety [Unknown]
  - Micturition urgency [Not Recovered/Not Resolved]
  - Depression [Unknown]
  - Rheumatoid arthritis [Not Recovered/Not Resolved]
  - Drug effect decreased [Unknown]
  - Stress [Not Recovered/Not Resolved]
